FAERS Safety Report 15843851 (Version 1)
Quarter: 2019Q1

REPORT INFORMATION
  Report Type: Spontaneous
  Country: FR (occurrence: FR)
  Receive Date: 20190118
  Receipt Date: 20190118
  Transmission Date: 20190417
  Serious: Yes (Hospitalization)
  Sender: FDA-Public Use
  Company Number: FR-BAUSCH-BL-2019-001486

PATIENT
  Age: 49 Year
  Sex: Male
  Weight: 54 kg

DRUGS (6)
  1. TAHOR [Concomitant]
     Active Substance: ATORVASTATIN CALCIUM
     Indication: DIABETES MELLITUS
     Dosage: COMPRIME PELLICULE
     Route: 048
  2. RAMIPRIL. [Concomitant]
     Active Substance: RAMIPRIL
     Indication: HYPERTENSION
     Route: 048
  3. ISOPHANE INSULIN [Concomitant]
     Active Substance: INSULIN NOS
     Indication: DIABETES MELLITUS
     Route: 058
  4. PREDNISOLONE. [Suspect]
     Active Substance: PREDNISOLONE
     Indication: FACE OEDEMA
     Route: 048
     Dates: start: 20180823, end: 20180828
  5. NOVOMIX [Concomitant]
     Active Substance: INSULIN ASPART
     Indication: DIABETES MELLITUS
     Route: 058
  6. LEVOCETIRIZINE (DICHLORHYDRATE DE) [Concomitant]
     Indication: FACE OEDEMA
     Route: 048
     Dates: start: 20180823, end: 20180828

REACTIONS (1)
  - Diabetic ketoacidotic hyperglycaemic coma [Recovered/Resolved]

NARRATIVE: CASE EVENT DATE: 20180925
